FAERS Safety Report 4970465-5 (Version None)
Quarter: 2006Q2

REPORT INFORMATION
  Report Type: 
  Country: None (occurrence: None)
  Receive Date: 20060411
  Receipt Date: 20060411
  Transmission Date: 20061013
  Serious: Yes (Other)
  Sender: FDA-Public Use
  Company Number: None

PATIENT
  Age: 53 Year
  Sex: Female
  Weight: 52.6173 kg

DRUGS (2)
  1. LEVAQUIN [Suspect]
     Indication: ANIMAL BITE
     Dosage: 7   1 PER DAY   PO
     Route: 048
     Dates: start: 20050920, end: 20050925
  2. LEVAQUIN [Suspect]
     Indication: LACERATION
     Dosage: 7   1 PER DAY   PO
     Route: 048
     Dates: start: 20050920, end: 20050925

REACTIONS (6)
  - ASTHENIA [None]
  - DIARRHOEA [None]
  - GENERAL PHYSICAL HEALTH DETERIORATION [None]
  - MYALGIA [None]
  - SKIN DISCOLOURATION [None]
  - WEIGHT DECREASED [None]
